FAERS Safety Report 11617025 (Version 1)
Quarter: 2015Q4

REPORT INFORMATION
  Report Type: Spontaneous
  Country: JP (occurrence: JP)
  Receive Date: 20151009
  Receipt Date: 20151009
  Transmission Date: 20160304
  Serious: Yes (Hospitalization, Other)
  Sender: FDA-Public Use
  Company Number: JP-GLAXOSMITHKLINE-JP2015JPN141406

PATIENT
  Age: 48 Year
  Sex: Male

DRUGS (2)
  1. VALTREX [Suspect]
     Active Substance: VALACYCLOVIR HYDROCHLORIDE
     Dosage: 500 MG, 1D
     Route: 048
  2. ZOVIRAX [Suspect]
     Active Substance: ACYCLOVIR
     Dosage: 250 MG, 1D
     Route: 041

REACTIONS (9)
  - Toxic encephalopathy [Recovering/Resolving]
  - Vomiting [Recovering/Resolving]
  - Blister [Unknown]
  - Altered state of consciousness [Recovering/Resolving]
  - Brain abscess [Recovering/Resolving]
  - Pulmonary oedema [Recovering/Resolving]
  - Pneumonia [Recovering/Resolving]
  - Scab [Unknown]
  - Pyrexia [Recovering/Resolving]
